FAERS Safety Report 9169215 (Version 1)
Quarter: 2013Q1

REPORT INFORMATION
  Report Type: Spontaneous
  Country: JP (occurrence: JP)
  Receive Date: 20130318
  Receipt Date: 20130318
  Transmission Date: 20140127
  Serious: Yes (Other)
  Sender: FDA-Public Use
  Company Number: JP-PFIZER INC-2013083552

PATIENT
  Sex: 0

DRUGS (2)
  1. VFEND [Suspect]
     Dosage: 400 MG/DAY
     Route: 048
  2. GLIVEC [Suspect]
     Dosage: 400 MG/DAY
     Route: 048

REACTIONS (2)
  - Renal impairment [Recovering/Resolving]
  - Drug level increased [Unknown]
